FAERS Safety Report 12745600 (Version 3)
Quarter: 2016Q4

REPORT INFORMATION
  Report Type: Spontaneous
  Country: US (occurrence: US)
  Receive Date: 20160915
  Receipt Date: 20161104
  Transmission Date: 20170207
  Serious: No
  Sender: FDA-Public Use
  Company Number: US-PFIZER INC-2016431368

PATIENT
  Age: 77 Year
  Sex: Female

DRUGS (2)
  1. LYRICA [Suspect]
     Active Substance: PREGABALIN
     Indication: NEUROPATHY PERIPHERAL
     Dosage: 50 MG, 3X/DAY
     Dates: start: 201601
  2. LYRICA [Suspect]
     Active Substance: PREGABALIN
     Indication: ENDOMETRIAL CANCER
     Dosage: 50 MG, 3X/DAY
     Route: 048
     Dates: start: 20161027

REACTIONS (2)
  - Bronchitis [Unknown]
  - Product use issue [Unknown]
